FAERS Safety Report 21141311 (Version 4)
Quarter: 2022Q3

REPORT INFORMATION
  Report Type: Spontaneous
  Country: AU (occurrence: AU)
  Receive Date: 20220728
  Receipt Date: 20220915
  Transmission Date: 20221027
  Serious: Yes (Other)
  Sender: FDA-Public Use
  Company Number: AU-MYLANLABS-2022M1081527

PATIENT
  Age: 40 Year
  Sex: Female

DRUGS (42)
  1. CLOZARIL [Suspect]
     Active Substance: CLOZAPINE
     Indication: Schizophrenia
     Dosage: 700 MILLIGRAM, QD (MAX DOSE ,MANE + NOCTE )
     Route: 048
     Dates: start: 20010207
  2. VALPROATE SODIUM [Suspect]
     Active Substance: VALPROATE SODIUM
     Indication: Product used for unknown indication
     Dosage: 1 GRAM, BID
     Route: 048
  3. PALIPERIDONE [Concomitant]
     Active Substance: PALIPERIDONE
     Dosage: 12 MILLIGRAM, PM (PALIPERIDONE 12MG PO NOCTE)
     Route: 048
  4. PALIPERIDONE [Concomitant]
     Active Substance: PALIPERIDONE
     Dosage: 12 MILLIGRAM, PM (PALIPERIDONE 12MG PO NOCTE)
     Route: 048
  5. SERTRALINE [Concomitant]
     Active Substance: SERTRALINE HYDROCHLORIDE
     Dosage: 200 MILLIGRAM, AM (200MG PO MANE)
     Route: 048
  6. SERTRALINE [Concomitant]
     Active Substance: SERTRALINE HYDROCHLORIDE
     Dosage: UNK
     Route: 065
     Dates: start: 2021
  7. HALOPERIDOL [Concomitant]
     Active Substance: HALOPERIDOL
     Dosage: 5 GRAM, BID
     Route: 065
  8. HALOPERIDOL [Concomitant]
     Active Substance: HALOPERIDOL
     Dosage: 5 GRAM, BID (15MG PO BD)
     Route: 048
  9. QUETIAPINE [Concomitant]
     Active Substance: QUETIAPINE
     Dosage: 300 MILLIGRAM, BID
     Route: 048
  10. QUETIAPINE [Concomitant]
     Active Substance: QUETIAPINE
     Dosage: 100 MILLIGRAM, HS (100MG PO NOCTE)
     Route: 048
  11. ZOPICLONE [Concomitant]
     Active Substance: ZOPICLONE
     Dosage: UNK, PRN (7.5 - 15MG PO NOCTE PRN)
     Route: 048
  12. ZOPICLONE [Concomitant]
     Active Substance: ZOPICLONE
     Dosage: UNK, PRN (7.5MG 1-2 TABS NOCTE PRN)
     Route: 065
     Dates: start: 202107
  13. ARIPIPRAZOLE [Concomitant]
     Active Substance: ARIPIPRAZOLE
     Dosage: 20 MILLIGRAM, AM (MANE)
     Route: 048
  14. ARIPIPRAZOLE [Concomitant]
     Active Substance: ARIPIPRAZOLE
     Dosage: 20 MILLIGRAM, AM (MANE)
     Route: 065
     Dates: start: 202107
  15. ARIPIPRAZOLE [Concomitant]
     Active Substance: ARIPIPRAZOLE
     Dosage: 30 MILLIGRAM, AM (MANE)
     Route: 065
     Dates: start: 202110
  16. FLUOXETINE [Concomitant]
     Active Substance: FLUOXETINE HYDROCHLORIDE
     Dosage: 20 MILLIGRAM, AM (MANE)
     Route: 065
     Dates: start: 2020
  17. FLUOXETINE [Concomitant]
     Active Substance: FLUOXETINE HYDROCHLORIDE
     Dosage: 20 MILLIGRAM, QD (20MG DAILY)
     Route: 065
     Dates: start: 202107
  18. MIRTAZAPINE [Concomitant]
     Active Substance: MIRTAZAPINE
     Dosage: UNK
     Route: 065
     Dates: start: 20210721
  19. MIRTAZAPINE [Concomitant]
     Active Substance: MIRTAZAPINE
     Dosage: 15 MILLIGRAM, HS (NOCTE)
     Route: 065
     Dates: start: 202107
  20. PERINDOPRIL [Concomitant]
     Active Substance: PERINDOPRIL
     Dosage: 5 MILLIGRAM, QD (5MG DAILY)
     Route: 065
     Dates: start: 202107
  21. PERINDOPRIL [Concomitant]
     Active Substance: PERINDOPRIL
     Dosage: 4 MILLIGRAM, AM (MANE)
     Route: 065
     Dates: start: 202110
  22. PANTOPRAZOLE [Concomitant]
     Active Substance: PANTOPRAZOLE
     Dosage: 40 MILLIGRAM, AM (MANE)
     Route: 065
     Dates: start: 202107
  23. PANTOPRAZOLE [Concomitant]
     Active Substance: PANTOPRAZOLE
     Dosage: 40 MILLIGRAM, AM (MANE)
     Route: 065
     Dates: start: 202110
  24. Maltofer [Concomitant]
     Dosage: 100 MILLIGRAM (SECOND DAILY)
     Route: 048
     Dates: start: 202107
  25. LEVLEN [Concomitant]
     Active Substance: ETHINYL ESTRADIOL\LEVONORGESTREL
     Dosage: UNK, QD (30/150MCG DAILY)
     Route: 065
     Dates: start: 202107
  26. LACTULOSE [Concomitant]
     Active Substance: LACTULOSE
     Dosage: 10 MILLILITER, AM (MANE)
     Route: 065
     Dates: start: 202107
  27. QUETIAPINE [Concomitant]
     Active Substance: QUETIAPINE
     Dosage: UNK (150MG NOCTE +50MG MANE)
     Route: 065
     Dates: start: 202107
  28. QUETIAPINE [Concomitant]
     Active Substance: QUETIAPINE
     Dosage: 400 MILLIGRAM, HS (NOCTE)
     Route: 065
     Dates: start: 202110
  29. LEVOTHYROXINE [Concomitant]
     Active Substance: LEVOTHYROXINE
     Dosage: UNK
     Route: 065
     Dates: start: 202107
  30. LEVOTHYROXINE [Concomitant]
     Active Substance: LEVOTHYROXINE
     Dosage: UNK (100MCG MANE + 50MCG MANE DOSE ON WEEKENDS)
     Route: 065
     Dates: start: 202110
  31. PANADOL [Concomitant]
     Active Substance: ACETAMINOPHEN
     Dosage: 665 MILLIGRAM, BID
     Route: 065
     Dates: start: 202107
  32. PANADOL [Concomitant]
     Active Substance: ACETAMINOPHEN
     Dosage: 1330 MILLIGRAM, BID
     Route: 065
     Dates: start: 202110
  33. DITROPAN [Concomitant]
     Active Substance: OXYBUTYNIN CHLORIDE
     Dosage: 5 MILLIGRAM (1 TAB MANE, 2 TAB NOCTE)
     Route: 065
     Dates: start: 202107
  34. DESVENLAFAXINE [Concomitant]
     Active Substance: DESVENLAFAXINE
     Dosage: 100 MILLIGRAM, AM (MANE)
     Route: 065
     Dates: start: 202110
  35. OXYBUTYNIN [Concomitant]
     Active Substance: OXYBUTYNIN
     Dosage: 5 MILLIGRAM, AM (MANE)
     Route: 065
     Dates: start: 202110
  36. OXYBUTYNIN [Concomitant]
     Active Substance: OXYBUTYNIN
     Dosage: 10 MILLIGRAM, AM (NOCTE)
     Route: 065
     Dates: start: 202110
  37. LORAZEPAM [Concomitant]
     Active Substance: LORAZEPAM
     Dosage: 0.5 MILLIGRAM, PRN
     Route: 065
     Dates: start: 202110
  38. VALPROATE SODIUM [Concomitant]
     Active Substance: VALPROATE SODIUM
     Dosage: 500 MILLIGRAM, BID
     Route: 065
     Dates: start: 202107
  39. VALPROATE SODIUM [Concomitant]
     Active Substance: VALPROATE SODIUM
     Dosage: UNK UNK, BID (SODIUM VALPROATE IG BD)
     Route: 065
     Dates: start: 202110
  40. VALPROATE SODIUM [Concomitant]
     Active Substance: VALPROATE SODIUM
     Dosage: UNK, BID (VALPROATE WAS INCREASED FROM 500MG BD TO  LG BD)
     Route: 065
     Dates: start: 20210709
  41. VALPROATE SODIUM [Concomitant]
     Active Substance: VALPROATE SODIUM
     Dosage: 500 MILLIGRAM, BID (500MG PO BD)
     Route: 048
  42. BENZTROPINE [Concomitant]
     Active Substance: BENZTROPINE
     Dosage: UNK, BID (IMG PO BD)
     Route: 048

REACTIONS (16)
  - Hallucination, auditory [Not Recovered/Not Resolved]
  - Suicidal ideation [Not Recovered/Not Resolved]
  - Neutropenia [Recovered/Resolved]
  - Blood immunoglobulin A decreased [Unknown]
  - Blood immunoglobulin M decreased [Unknown]
  - Red cell distribution width increased [Recovered/Resolved]
  - Blood magnesium decreased [Unknown]
  - Low density lipoprotein increased [Not Recovered/Not Resolved]
  - Non-high-density lipoprotein cholesterol increased [Unknown]
  - Blood thyroid stimulating hormone increased [Recovered/Resolved]
  - Blood creatinine decreased [Not Recovered/Not Resolved]
  - Lymphocyte count decreased [Recovered/Resolved]
  - Blood cholesterol increased [Unknown]
  - Blood glucose increased [Unknown]
  - White blood cell count decreased [Recovered/Resolved]
  - Haemoglobin decreased [Recovered/Resolved]

NARRATIVE: CASE EVENT DATE: 20180607
